FAERS Safety Report 9511244 (Version 1)
Quarter: 2013Q3

REPORT INFORMATION
  Report Type: Report from Study
  Country: NL (occurrence: NL)
  Receive Date: 20130910
  Receipt Date: 20130910
  Transmission Date: 20140515
  Serious: Yes (Death)
  Sender: FDA-Public Use
  Company Number: NL-ROCHE-1269778

PATIENT
  Age: 63 Year
  Sex: Female

DRUGS (8)
  1. CAPECITABINE [Suspect]
     Indication: COLON CANCER
     Dosage: 2000 MG, ON 25/MAR/2013, LAST DOSE WAS ADMINISTERED PRIOR TO SAE
     Route: 065
     Dates: end: 20130325
  2. CAPECITABINE [Suspect]
     Indication: RECTAL CANCER
  3. OXALIPLATIN [Suspect]
     Indication: COLON CANCER
     Dosage: 260 MG, ON 25/MAR/2013, LAST DOSE WAS ADMINISTERED PRIOR TO SAE
     Route: 065
  4. OXALIPLATIN [Suspect]
     Indication: RECTAL CANCER
  5. FRAGMIN [Concomitant]
  6. METOCLOL [Concomitant]
  7. ONDANSETRON [Concomitant]
  8. DEXAMETHASONE [Concomitant]

REACTIONS (1)
  - Cardiac arrest [Fatal]
